FAERS Safety Report 5989702-3 (Version None)
Quarter: 2008Q4

REPORT INFORMATION
  Report Type: 
  Country: None (occurrence: None)
  Receive Date: 20081210
  Receipt Date: 20081201
  Transmission Date: 20090506
  Serious: Yes (Hospitalization)
  Sender: FDA-Public Use
  Company Number: AU-B.I. PHARMACEUTICALS,INC./RIDGEFIELD-2008-BP-18231AU

PATIENT
  Sex: Female

DRUGS (2)
  1. SIFROL [Suspect]
     Indication: RESTLESS LEGS SYNDROME
  2. ANAESTHETIC [Suspect]
     Indication: ANAESTHESIA

REACTIONS (2)
  - HIP ARTHROPLASTY [None]
  - VOMITING [None]
